FAERS Safety Report 6726577-9 (Version None)
Quarter: 2010Q2

REPORT INFORMATION
  Report Type: 
  Country: None (occurrence: None)
  Receive Date: 20100514
  Receipt Date: 20100503
  Transmission Date: 20101027
  Serious: Yes (Other)
  Sender: FDA-Public Use
  Company Number: DE-ELI_LILLY_AND_COMPANY-DE201005000108

PATIENT
  Sex: Female
  Weight: 55 kg

DRUGS (4)
  1. CYMBALTA [Suspect]
     Dosage: 120 MG, UNKNOWN
     Route: 048
  2. LYRICA [Concomitant]
     Dosage: 120 MG, UNKNOWN
     Route: 065
  3. ALCOHOL [Concomitant]
     Dosage: UNK, UNKNOWN
     Route: 065
  4. AGOMELATIN [Concomitant]
     Dosage: 50 MG, UNKNOWN
     Route: 065

REACTIONS (1)
  - LOSS OF CONSCIOUSNESS [None]
